FAERS Safety Report 6353850-9 (Version None)
Quarter: 2009Q3

REPORT INFORMATION
  Report Type: 
  Country: None (occurrence: None)
  Receive Date: 20090912
  Receipt Date: 20090622
  Transmission Date: 20100115
  Serious: No
  Sender: FDA-Public Use
  Company Number: US-ABBOTT-08P-163-0480048-00

PATIENT
  Sex: Female
  Weight: 99.88 kg

DRUGS (11)
  1. HUMIRA [Suspect]
     Indication: RHEUMATOID ARTHRITIS
     Route: 058
     Dates: start: 20070601
  2. HUMIRA [Suspect]
     Dosage: SYRINGE
     Route: 058
     Dates: start: 20061228, end: 20070601
  3. METHOTREXATE [Concomitant]
     Indication: RHEUMATOID ARTHRITIS
     Route: 050
     Dates: start: 19990101
  4. PREDNISONE [Concomitant]
     Indication: RHEUMATOID ARTHRITIS
     Route: 048
     Dates: start: 19990101
  5. FOLIC ACID [Concomitant]
     Indication: VITAMIN SUPPLEMENTATION
     Route: 048
     Dates: start: 19990101
  6. IBUPROFEN [Concomitant]
     Indication: ARTHRALGIA
     Route: 048
     Dates: start: 20070101
  7. BETAXOLOL HYDROCHLORIDE [Concomitant]
     Indication: GLAUCOMA
     Dates: start: 19730101
  8. ERGOCALCIFEROL [Concomitant]
     Indication: VITAMIN D
     Route: 048
     Dates: start: 20080101
  9. ERGOCALCIFEROL [Concomitant]
     Indication: VITAMIN SUPPLEMENTATION
  10. VIGRAN [Concomitant]
     Indication: VITAMIN SUPPLEMENTATION
     Route: 048
  11. CALCIUM CITRATE [Concomitant]
     Indication: MINERAL SUPPLEMENTATION
     Route: 048
     Dates: start: 20080101

REACTIONS (5)
  - DRUG DELIVERY SYSTEM MALFUNCTION [None]
  - INCORRECT DOSE ADMINISTERED [None]
  - INJECTION SITE EXTRAVASATION [None]
  - INJECTION SITE HAEMORRHAGE [None]
  - INJECTION SITE PAIN [None]
